FAERS Safety Report 7077653-5 (Version None)
Quarter: 2010Q4

REPORT INFORMATION
  Report Type: 
  Country: None (occurrence: None)
  Receive Date: 20101101
  Receipt Date: 20101026
  Transmission Date: 20110411
  Serious: Yes (Hospitalization)
  Sender: FDA-Public Use
  Company Number: US-ALEXION-A201001333

PATIENT
  Sex: Female

DRUGS (11)
  1. SOLIRIS [Suspect]
     Indication: PAROXYSMAL NOCTURNAL HAEMOGLOBINURIA
     Dosage: 600 MG, QW
     Route: 042
     Dates: start: 20070710, end: 20070731
  2. SOLIRIS [Suspect]
     Dosage: 900 MG, Q2W
     Route: 042
     Dates: start: 20070807
  3. ADVAIR DISKUS 100/50 [Concomitant]
     Dosage: UNK
  4. EXJADE [Concomitant]
     Dosage: UNK
  5. COLACE [Concomitant]
     Dosage: UNK
  6. METOPROLOL [Concomitant]
     Dosage: UNK
  7. CELEXA [Concomitant]
     Dosage: UNK
  8. ALBUTEROL [Concomitant]
     Dosage: UNK
  9. COUMADIN [Concomitant]
     Dosage: UNK
  10. LASIX [Concomitant]
  11. POTASSIUM CHLORIDE [Concomitant]
     Dosage: UNK

REACTIONS (5)
  - ABDOMINAL PAIN LOWER [None]
  - BACK PAIN [None]
  - CHEST PAIN [None]
  - HAEMOGLOBIN DECREASED [None]
  - VOMITING [None]
